FAERS Safety Report 5445107-5 (Version None)
Quarter: 2007Q3

REPORT INFORMATION
  Report Type: 
  Country: None (occurrence: None)
  Receive Date: 20070906
  Receipt Date: 20070828
  Transmission Date: 20080115
  Serious: Yes (Death, Hospitalization)
  Sender: FDA-Public Use
  Company Number: US-BAXTER-2007BH007466

PATIENT
  Age: 70 Year
  Sex: Female
  Weight: 39 kg

DRUGS (1)
  1. DIANEAL [Suspect]
     Indication: RENAL FAILURE CHRONIC
     Route: 033
     Dates: start: 20070119

REACTIONS (4)
  - FALL [None]
  - GASTROINTESTINAL HAEMORRHAGE [None]
  - PELVIC FRACTURE [None]
  - PNEUMONIA ASPIRATION [None]
